FAERS Safety Report 13981543 (Version 1)
Quarter: 2017Q3

REPORT INFORMATION
  Report Type: Spontaneous
  Country: US (occurrence: US)
  Receive Date: 20170916
  Receipt Date: 20170916
  Transmission Date: 20171128
  Serious: Yes (Hospitalization)
  Sender: FDA-Public Use
  Company Number: None

PATIENT
  Sex: Female
  Weight: 112.5 kg

DRUGS (1)
  1. PICATO [Suspect]
     Active Substance: INGENOL MEBUTATE
     Indication: ACTINIC KERATOSIS
     Dosage: ?          QUANTITY:3 3;?
     Route: 061
     Dates: start: 20170904, end: 20170906

REACTIONS (3)
  - Lip blister [None]
  - Swelling [None]
  - Dizziness [None]

NARRATIVE: CASE EVENT DATE: 20170913
